FAERS Safety Report 8590344-4 (Version None)
Quarter: 2012Q3

REPORT INFORMATION
  Report Type: 
  Country: None (occurrence: None)
  Receive Date: 20120813
  Receipt Date: 20120806
  Transmission Date: 20120928
  Serious: Yes (Other)
  Sender: FDA-Public Use
  Company Number: US-UCBSA-058389

PATIENT
  Age: 40 Year
  Sex: Female

DRUGS (3)
  1. VIMPAT [Suspect]
     Dosage: LOADED WITH 300 MG
  2. VIMPAT [Suspect]
     Indication: EPILEPSY
     Dates: start: 20120521, end: 20120523
  3. TRILEPTAL [Concomitant]
     Indication: EPILEPSY

REACTIONS (3)
  - ARTHRALGIA [None]
  - DYSPNOEA [None]
  - SINUS BRADYCARDIA [None]
